FAERS Safety Report 7137614-4 (Version None)
Quarter: 2010Q4

REPORT INFORMATION
  Report Type: 
  Country: None (occurrence: None)
  Receive Date: 20101206
  Receipt Date: 20101201
  Transmission Date: 20110411
  Serious: Yes (Other)
  Sender: FDA-Public Use
  Company Number: JP-JNJFOC-20101107098

PATIENT
  Age: 89 Year
  Sex: Female

DRUGS (7)
  1. LEVOFLOXACIN [Suspect]
     Indication: CYSTITIS
     Route: 065
  2. DISOPYRAMIDE PHOSPHATE [Concomitant]
     Route: 065
  3. KLARICID [Concomitant]
     Route: 065
  4. NATRIX [Concomitant]
     Route: 065
  5. AMLODIPINE [Concomitant]
     Route: 065
  6. CARDENALIN [Concomitant]
     Route: 065
  7. ALL OTHER THERAPEUTIC AGENTS [Concomitant]
     Route: 065

REACTIONS (1)
  - LOSS OF CONSCIOUSNESS [None]
